FAERS Safety Report 7729738-5 (Version None)
Quarter: 2011Q3

REPORT INFORMATION
  Report Type: 
  Country: None (occurrence: None)
  Receive Date: 20110906
  Receipt Date: 20110826
  Transmission Date: 20111222
  Serious: Yes (Hospitalization, Other)
  Sender: FDA-Public Use
  Company Number: JP-SANOFI-AVENTIS-2011SA056411

PATIENT
  Age: 65 Year
  Sex: Female

DRUGS (3)
  1. ENOXAPARIN SODIUM [Suspect]
     Route: 058
     Dates: start: 20110804, end: 20110807
  2. HEPARIN SODIUM [Suspect]
     Dosage: DOSE:1000 UNIT(S)
     Route: 042
     Dates: start: 20110804, end: 20110806
  3. HEPARIN SODIUM [Suspect]
     Dosage: DOSE:1000 UNIT(S)
     Route: 042
     Dates: start: 20110730, end: 20110801

REACTIONS (2)
  - HYPERCOAGULATION [None]
  - PLATELET COUNT DECREASED [None]
